FAERS Safety Report 24644858 (Version 1)
Quarter: 2024Q4

REPORT INFORMATION
  Report Type: Spontaneous
  Country: CA (occurrence: CA)
  Receive Date: 20241121
  Receipt Date: 20241121
  Transmission Date: 20250115
  Serious: Yes (Hospitalization, Other)
  Sender: AMGEN
  Company Number: CA-AMGEN-CANSP2024226476

PATIENT

DRUGS (1)
  1. BEVACIZUMAB [Suspect]
     Active Substance: BEVACIZUMAB
     Indication: Age-related macular degeneration
     Dosage: UNK
     Route: 065

REACTIONS (13)
  - Retinal detachment [Unknown]
  - Unevaluable event [Unknown]
  - COVID-19 [Unknown]
  - Injection site pain [Unknown]
  - Vision blurred [Unknown]
  - Loss of personal independence in daily activities [Unknown]
  - Impaired driving ability [Unknown]
  - Malaise [Unknown]
  - Fear of injection [Unknown]
  - Drug effective for unapproved indication [Unknown]
  - Drug ineffective for unapproved indication [Unknown]
  - Dry eye [Unknown]
  - Off label use [Unknown]
